FAERS Safety Report 6054420-2 (Version None)
Quarter: 2009Q1

REPORT INFORMATION
  Report Type: 
  Country: None (occurrence: None)
  Receive Date: 20090127
  Receipt Date: 20090122
  Transmission Date: 20090719
  Serious: Yes (Hospitalization)
  Sender: FDA-Public Use
  Company Number: JP-B.I. PHARMACEUTICALS,INC./RIDGEFIELD-2009-BP-00813NB

PATIENT
  Age: 77 Year
  Sex: Male

DRUGS (10)
  1. MICARDIS [Suspect]
     Dosage: 40MG
     Route: 048
  2. GENINAX [Suspect]
     Indication: PNEUMONIA ASPIRATION
     Dosage: 200MG
     Route: 048
     Dates: start: 20080717, end: 20090110
  3. MUCODYNE [Concomitant]
     Route: 048
  4. MELBIN [Concomitant]
     Route: 048
  5. MUCOSTA [Concomitant]
     Route: 048
  6. SEIBULE [Concomitant]
     Route: 048
  7. ZESULAN [Concomitant]
     Route: 048
  8. ACTOS [Concomitant]
     Route: 048
  9. TANATRIL [Concomitant]
     Route: 048
  10. SYMMETREL [Concomitant]
     Route: 048

REACTIONS (1)
  - VOLVULUS [None]
